FAERS Safety Report 6303891-2 (Version None)
Quarter: 2009Q3

REPORT INFORMATION
  Report Type: 
  Country: None (occurrence: None)
  Receive Date: 20090807
  Receipt Date: 20090807
  Transmission Date: 20100115
  Serious: Yes (Other)
  Sender: FDA-Public Use
  Company Number: None

PATIENT
  Sex: Female
  Weight: 50.8029 kg

DRUGS (1)
  1. ADDERALL 20 [Suspect]
     Indication: ATTENTION DEFICIT/HYPERACTIVITY DISORDER
     Dosage: 80MG, PER DAY, ORALLY
     Route: 048
     Dates: start: 20090301

REACTIONS (8)
  - ANXIETY [None]
  - DECREASED APPETITE [None]
  - DEHYDRATION [None]
  - HEADACHE [None]
  - NAUSEA [None]
  - NERVOUSNESS [None]
  - PRODUCT SUBSTITUTION ISSUE [None]
  - TREMOR [None]
